FAERS Safety Report 24310298 (Version 1)
Quarter: 2024Q3

REPORT INFORMATION
  Report Type: Report from Study
  Country: CA (occurrence: CA)
  Receive Date: 20240912
  Receipt Date: 20240912
  Transmission Date: 20241017
  Serious: Yes (Other)
  Sender: ACCORD
  Company Number: None

PATIENT
  Age: 27 Year
  Sex: Female

DRUGS (8)
  1. LEUPROLIDE ACETATE [Suspect]
     Active Substance: ISOPROPYL ALCOHOL\LEUPROLIDE ACETATE
     Indication: Premenstrual dysphoric disorder
     Dosage: 1 EVERY 3 MONTHS
     Route: 030
  2. Bazedoxifene, Estrogens conjugated [Concomitant]
     Indication: Hormone replacement therapy
     Dosage: IMMEDIATE AND EXTENDED RELEASE, 1 EVERY 1 DAYS
     Route: 048
  3. LAMOTRIGINE [Concomitant]
     Active Substance: LAMOTRIGINE
     Indication: Product used for unknown indication
     Route: 048
  4. LURASIDONE [Concomitant]
     Active Substance: LURASIDONE
     Indication: Bipolar disorder
     Route: 048
  5. SERTRALINE HYDROCHLORIDE [Concomitant]
     Active Substance: SERTRALINE HYDROCHLORIDE
     Indication: Premenstrual dysphoric disorder
     Route: 048
  6. TRAZODONE [Concomitant]
     Active Substance: TRAZODONE HYDROCHLORIDE
     Indication: Sleep disorder
     Route: 048
  7. LISDEXAMFETAMINE DIMESYLATE [Concomitant]
     Active Substance: LISDEXAMFETAMINE DIMESYLATE
     Indication: Attention deficit hyperactivity disorder
     Route: 048
  8. LEUPROLIDE ACETATE [Suspect]
     Active Substance: ISOPROPYL ALCOHOL\LEUPROLIDE ACETATE
     Indication: Premenstrual dysphoric disorder
     Route: 030

REACTIONS (6)
  - Drug ineffective [Unknown]
  - Insomnia [Unknown]
  - Irritability [Unknown]
  - Off label use [Unknown]
  - Premenstrual dysphoric disorder [Unknown]
  - Suicidal ideation [Unknown]
